FAERS Safety Report 9280294 (Version 1)
Quarter: 2013Q2

REPORT INFORMATION
  Report Type: Spontaneous
  Country: US (occurrence: None)
  Receive Date: 20130507
  Receipt Date: 20130507
  Transmission Date: 20140414
  Serious: Yes (Disabling)
  Sender: FDA-Public Use
  Company Number: None

PATIENT
  Age: 45 Year
  Sex: Male
  Weight: 110.68 kg

DRUGS (1)
  1. REMICADE [Suspect]

REACTIONS (9)
  - Arthralgia [None]
  - Blister [None]
  - Oropharyngeal pain [None]
  - Toothache [None]
  - Quality of life decreased [None]
  - Arthralgia [None]
  - Arthralgia [None]
  - Musculoskeletal pain [None]
  - Pyrexia [None]
